FAERS Safety Report 9011336 (Version 1)
Quarter: 2013Q1

REPORT INFORMATION
  Report Type: Report from Study
  Country: US (occurrence: US)
  Receive Date: 20130108
  Receipt Date: 20130108
  Transmission Date: 20140127
  Serious: Yes (Hospitalization)
  Sender: FDA-Public Use
  Company Number: US-JNJFOC-20121214011

PATIENT
  Age: 54 None
  Sex: Female
  Weight: 87.09 kg

DRUGS (4)
  1. REMICADE [Suspect]
     Indication: CROHN^S DISEASE
     Route: 042
     Dates: start: 20090513
  2. REMICADE [Suspect]
     Indication: CROHN^S DISEASE
     Route: 042
     Dates: start: 20090624, end: 2011
  3. REMICADE [Suspect]
     Indication: CROHN^S DISEASE
     Route: 042
     Dates: start: 2011
  4. CANASA [Concomitant]
     Indication: CROHN^S DISEASE
     Route: 065

REACTIONS (10)
  - Pain [Unknown]
  - Crohn^s disease [Recovering/Resolving]
  - Dehydration [Unknown]
  - Nausea [Unknown]
  - Pain in extremity [Unknown]
  - Feeling abnormal [Unknown]
  - Amnesia [Unknown]
  - Myocardial infarction [Unknown]
  - Infusion related reaction [Unknown]
  - Pruritus [Recovered/Resolved]
